FAERS Safety Report 16550999 (Version 1)
Quarter: 2019Q3

REPORT INFORMATION
  Report Type: Spontaneous
  Country: FI (occurrence: FI)
  Receive Date: 20190710
  Receipt Date: 20190710
  Transmission Date: 20191004
  Serious: Yes (Life-Threatening)
  Sender: FDA-Public Use
  Company Number: FI-TEVA-2019-FI-1075091

PATIENT
  Age: 62 Year
  Sex: Female

DRUGS (16)
  1. DEXAMETASON [Suspect]
     Active Substance: DEXAMETHASONE
     Dosage: 15 MG,DAILY
     Route: 048
     Dates: start: 20190315
  2. PRIMPERAN [Concomitant]
     Active Substance: METOCLOPRAMIDE HYDROCHLORIDE
  3. HERCEPTIN [Suspect]
     Active Substance: TRASTUZUMAB
     Indication: BREAST CANCER
     Route: 058
     Dates: start: 20190315
  4. SOMAC [Concomitant]
     Active Substance: PANTOPRAZOLE SODIUM
  5. AKYNZEO [Concomitant]
     Active Substance: NETUPITANT\PALONOSETRON HYDROCHLORIDE
  6. DIAPAM [Concomitant]
  7. BURANA [Concomitant]
     Active Substance: IBUPROFEN
  8. DOCETAXEL. [Suspect]
     Active Substance: DOCETAXEL
     Indication: BREAST CANCER
     Route: 042
     Dates: start: 20190315
  9. PELGRAZ [Suspect]
     Active Substance: PEGFILGRASTIM
     Indication: BREAST CANCER
     Route: 058
     Dates: start: 20190315
  10. SEPRAM [Concomitant]
     Active Substance: CITALOPRAM HYDROBROMIDE
     Dosage: 40 MG,DAILY
  11. OXYNORM [Concomitant]
     Active Substance: OXYCODONE HYDROCHLORIDE
  12. THYROXIN [Concomitant]
     Active Substance: LEVOTHYROXINE
     Dosage: 100 ?G,DAILY
  13. MIRTAZAPIN ACTAVIS [Concomitant]
     Active Substance: MIRTAZAPINE
     Dosage: 7.5 MG,DAILY
  14. DALACIN [Concomitant]
     Active Substance: CLINDAMYCIN
  15. OXYCONTIN [Concomitant]
     Active Substance: OXYCODONE HYDROCHLORIDE
     Dosage: 20 MG,DAILY
  16. PREGABALIN ORION [Concomitant]
     Dosage: 300 MG,DAILY

REACTIONS (12)
  - Acute respiratory distress syndrome [Not Recovered/Not Resolved]
  - General physical health deterioration [Not Recovered/Not Resolved]
  - Toxicity to various agents [Not Recovered/Not Resolved]
  - Depressed level of consciousness [Not Recovered/Not Resolved]
  - Cardiac failure [Not Recovered/Not Resolved]
  - Inflammation [Not Recovered/Not Resolved]
  - Lung infiltration [Not Recovered/Not Resolved]
  - Blood pressure decreased [Not Recovered/Not Resolved]
  - Respiratory failure [Not Recovered/Not Resolved]
  - Diarrhoea [Not Recovered/Not Resolved]
  - Bone marrow failure [Not Recovered/Not Resolved]
  - Stomatitis [Not Recovered/Not Resolved]

NARRATIVE: CASE EVENT DATE: 201904
